FAERS Safety Report 5506737-5 (Version None)
Quarter: 2007Q4

REPORT INFORMATION
  Report Type: 
  Country: None (occurrence: None)
  Receive Date: 20071105
  Receipt Date: 20071024
  Transmission Date: 20080405
  Serious: Yes (Life-Threatening, Hospitalization)
  Sender: FDA-Public Use
  Company Number: FR-AMGEN-US250332

PATIENT
  Sex: Female

DRUGS (2)
  1. ENBREL [Suspect]
     Indication: PSORIATIC ARTHROPATHY
     Route: 058
     Dates: start: 20051115, end: 20070223
  2. CORTANCYL [Suspect]
     Route: 048

REACTIONS (3)
  - PERITONSILLAR ABSCESS [None]
  - POSTURE ABNORMAL [None]
  - SINUSITIS [None]
